FAERS Safety Report 16639389 (Version 1)
Quarter: 2019Q3

REPORT INFORMATION
  Report Type: Spontaneous
  Country: JP (occurrence: JP)
  Receive Date: 20190726
  Receipt Date: 20190726
  Transmission Date: 20191004
  Serious: Yes (Hospitalization)
  Sender: FDA-Public Use
  Company Number: JP-VIFOR (INTERNATIONAL) INC.-VIT-2019-07253

PATIENT
  Age: 9 Decade
  Sex: Female

DRUGS (1)
  1. MIRCERA [Suspect]
     Active Substance: METHOXY POLYETHYLENE GLYCOL-EPOETIN BETA
     Indication: OSTEOPOROSIS
     Route: 058
     Dates: start: 20190618, end: 20190618

REACTIONS (2)
  - Product use in unapproved indication [Unknown]
  - Femur fracture [Unknown]

NARRATIVE: CASE EVENT DATE: 20190618
